FAERS Safety Report 8557170-3 (Version None)
Quarter: 2012Q3

REPORT INFORMATION
  Report Type: 
  Country: None (occurrence: None)
  Receive Date: 20120801
  Receipt Date: 20120725
  Transmission Date: 20120928
  Serious: Yes (Other)
  Sender: FDA-Public Use
  Company Number: US-PFIZER INC-2012180682

PATIENT
  Sex: Female
  Weight: 54.422 kg

DRUGS (4)
  1. VORICONAZOLE [Suspect]
     Dosage: UNK
     Dates: end: 20120315
  2. ZETIA [Concomitant]
     Indication: BLOOD CHOLESTEROL ABNORMAL
     Dosage: 10 MG, DAILY
  3. VORICONAZOLE [Suspect]
     Indication: EYE INFECTION FUNGAL
     Dosage: 200 MG, DAILY
     Route: 048
     Dates: start: 20120217
  4. CRESTOR [Concomitant]
     Indication: BLOOD CHOLESTEROL ABNORMAL
     Dosage: 10 MG, 2X/WEEK

REACTIONS (7)
  - DYSSTASIA [None]
  - PAIN IN EXTREMITY [None]
  - BACK PAIN [None]
  - DRUG INTOLERANCE [None]
  - ABASIA [None]
  - PAIN [None]
  - ACTIVITIES OF DAILY LIVING IMPAIRED [None]
